FAERS Safety Report 9444813 (Version 2)
Quarter: 2013Q3

REPORT INFORMATION
  Report Type: Report from Study
  Country: US (occurrence: US)
  Receive Date: 20130807
  Receipt Date: 20130927
  Transmission Date: 20140515
  Serious: Yes (Other)
  Sender: FDA-Public Use
  Company Number: US-SANOFI-AVENTIS-2013SA079160

PATIENT
  Sex: Female

DRUGS (1)
  1. AUBAGIO [Suspect]
     Indication: MULTIPLE SCLEROSIS
     Route: 065

REACTIONS (7)
  - Renal disorder [Unknown]
  - Transient ischaemic attack [Unknown]
  - Hypotension [Unknown]
  - Multiple sclerosis relapse [Unknown]
  - Dysarthria [Unknown]
  - Diarrhoea [Unknown]
  - Weight decreased [Unknown]
